FAERS Safety Report 5016739-3 (Version None)
Quarter: 2006Q2

REPORT INFORMATION
  Report Type: 
  Country: None (occurrence: None)
  Receive Date: 20060602
  Receipt Date: 20060209
  Transmission Date: 20061013
  Serious: No
  Sender: FDA-Public Use
  Company Number: US-GLAXOSMITHKLINE-A0593061A

PATIENT
  Sex: Female

DRUGS (1)
  1. AUGMENTIN '125' [Suspect]
     Indication: EAR INFECTION
     Route: 048
     Dates: start: 20040101

REACTIONS (5)
  - DIARRHOEA [None]
  - DYSPNOEA [None]
  - HYPERSENSITIVITY [None]
  - SWOLLEN TONGUE [None]
  - VOMITING [None]
